FAERS Safety Report 9394482 (Version 1)
Quarter: 2013Q3

REPORT INFORMATION
  Report Type: Report from Study
  Country: MX (occurrence: MX)
  Receive Date: 20130711
  Receipt Date: 20130711
  Transmission Date: 20140515
  Serious: Yes (Other)
  Sender: FDA-Public Use
  Company Number: PHHY2013MX071917

PATIENT
  Sex: Male

DRUGS (1)
  1. EXFORGE HCT [Suspect]
     Indication: HYPERTENSION
     Dosage: 1 DF (320 MG VALS/ 10 MG AMLO/ 25 MG HYDR), DAILY
     Route: 048
     Dates: start: 201207

REACTIONS (2)
  - Foot fracture [Recovering/Resolving]
  - Accident [Recovering/Resolving]
